FAERS Safety Report 8964942 (Version 1)
Quarter: 2012Q4

REPORT INFORMATION
  Report Type: 
  Country: DE (occurrence: DE)
  Receive Date: 20121213
  Receipt Date: 20121213
  Transmission Date: 20130627
  Serious: Yes (Hospitalization)
  Sender: FDA-Public Use
  Company Number: DE-ROCHE-1083262

PATIENT
  Sex: Male

DRUGS (2)
  1. ZELBORAF [Suspect]
     Indication: METASTATIC MALIGNANT MELANOMA
     Route: 048
     Dates: start: 201204
  2. ZELBORAF [Suspect]
     Route: 048

REACTIONS (6)
  - Pericardial effusion [Recovered/Resolved]
  - Pleural effusion [Recovered/Resolved]
  - Dyspnoea [Unknown]
  - Sleep disorder [Recovered/Resolved]
  - Skin disorder [Unknown]
  - Diarrhoea [Recovered/Resolved]
